FAERS Safety Report 14051310 (Version 1)
Quarter: 2017Q4

REPORT INFORMATION
  Report Type: Spontaneous
  Country: US (occurrence: US)
  Receive Date: 20171005
  Receipt Date: 20171005
  Transmission Date: 20180321
  Serious: No
  Sender: FDA-Public Use
  Company Number: US-SEATTLE GENETICS-2017SGN00403

PATIENT
  Sex: Female

DRUGS (1)
  1. ADCETRIS [Suspect]
     Active Substance: BRENTUXIMAB VEDOTIN
     Indication: HODGKIN^S DISEASE
     Dosage: UNK UNK, Q21D
     Route: 065
     Dates: start: 20161129, end: 20170207

REACTIONS (5)
  - Decreased appetite [Not Recovered/Not Resolved]
  - Blister [Not Recovered/Not Resolved]
  - Nausea [Not Recovered/Not Resolved]
  - Rash [Not Recovered/Not Resolved]
  - Hypoaesthesia [Not Recovered/Not Resolved]
